FAERS Safety Report 8542389-8 (Version None)
Quarter: 2012Q3

REPORT INFORMATION
  Report Type: 
  Country: None (occurrence: None)
  Receive Date: 20120726
  Receipt Date: 20111010
  Transmission Date: 20120928
  Serious: Yes (Hospitalization, Other)
  Sender: FDA-Public Use
  Company Number: US-ASTRAZENECA-2011SE56005

PATIENT
  Age: 41 Year
  Sex: Male
  Weight: 104.3 kg

DRUGS (3)
  1. ZYPREXA [Concomitant]
     Route: 065
  2. SEROQUEL [Suspect]
     Indication: SCHIZOAFFECTIVE DISORDER
     Dosage: 300 MILLIGRAMS IN THE MORNING, 600 MILLIGRAMS AT BEDTIME, TOTAL DAILY DOSE: 900 MILLIGRAMS
     Route: 048
     Dates: start: 20080411, end: 20110908
  3. DEPAKOTE [Concomitant]
     Indication: SCHIZOAFFECTIVE DISORDER
     Route: 048
     Dates: start: 20080411

REACTIONS (1)
  - PRIAPISM [None]
